FAERS Safety Report 10655848 (Version 2)
Quarter: 2014Q4

REPORT INFORMATION
  Report Type: Report from Study
  Country: NL (occurrence: NL)
  Receive Date: 20141216
  Receipt Date: 20141216
  Transmission Date: 20150529
  Serious: Yes (Hospitalization, Other)
  Sender: FDA-Public Use
  Company Number: NL-CELGENE-NLD-2014110004

PATIENT
  Age: 82 Year
  Sex: Female
  Weight: 65 kg

DRUGS (15)
  1. FLUCONAZOL [Concomitant]
     Active Substance: FLUCONAZOLE
     Route: 048
     Dates: start: 20140909
  2. MOVICOLON [Concomitant]
     Active Substance: POLYETHYLENE GLYCOL 3350\POTASSIUM CHLORIDE\SODIUM BICARBONATE\SODIUM CHLORIDE
     Indication: PRODUCT USED FOR UNKNOWN INDICATION
     Route: 065
     Dates: start: 20140828
  3. EXJADE [Concomitant]
     Active Substance: DEFERASIROX
     Indication: SERUM FERRITIN INCREASED
     Route: 048
     Dates: start: 20130417
  4. TRANEXAMIC ACID. [Concomitant]
     Active Substance: TRANEXAMIC ACID
     Indication: HAEMORRHAGE PROPHYLAXIS
     Route: 048
     Dates: start: 20140326
  5. PRIMPERAN [Concomitant]
     Active Substance: METOCLOPRAMIDE HYDROCHLORIDE
     Indication: PROPHYLAXIS OF NAUSEA AND VOMITING
     Route: 065
     Dates: start: 201409
  6. ONDANSETRON [Concomitant]
     Active Substance: ONDANSETRON
     Indication: PROPHYLAXIS OF NAUSEA AND VOMITING
     Route: 065
     Dates: start: 201409
  7. VIDAZA [Suspect]
     Active Substance: AZACITIDINE
     Route: 058
     Dates: start: 20140910, end: 20140916
  8. CIPROXIN [Concomitant]
     Active Substance: CIPROFLOXACIN
     Indication: PROPHYLAXIS
     Route: 065
     Dates: start: 20140716
  9. VORICONAZOLE. [Concomitant]
     Active Substance: VORICONAZOLE
     Indication: LUNG INFECTION
     Route: 048
     Dates: start: 20141106
  10. PANTOPRAZOLE [Concomitant]
     Active Substance: PANTOPRAZOLE SODIUM
     Indication: GASTRITIS PROPHYLAXIS
     Route: 048
     Dates: start: 2014
  11. MEROPENEM. [Concomitant]
     Active Substance: MEROPENEM
     Indication: LUNG INFECTION
     Route: 048
     Dates: start: 20141106, end: 20141112
  12. VIDAZA [Suspect]
     Active Substance: AZACITIDINE
     Indication: MYELODYSPLASTIC SYNDROME
     Route: 058
     Dates: start: 20140813, end: 20140819
  13. VIDAZA [Suspect]
     Active Substance: AZACITIDINE
     Route: 058
     Dates: start: 20141008, end: 20141014
  14. FLUCONAZOL [Concomitant]
     Active Substance: FLUCONAZOLE
     Indication: PROPHYLAXIS
     Route: 065
     Dates: start: 20140716
  15. CIPROXIN [Concomitant]
     Active Substance: CIPROFLOXACIN
     Route: 048
     Dates: start: 20140909

REACTIONS (3)
  - Febrile neutropenia [Not Recovered/Not Resolved]
  - Candida infection [Not Recovered/Not Resolved]
  - Haematoma [Not Recovered/Not Resolved]

NARRATIVE: CASE EVENT DATE: 20141020
